FAERS Safety Report 9952356 (Version 2)
Quarter: 2014Q1

REPORT INFORMATION
  Report Type: Report from Study
  Country: US (occurrence: US)
  Receive Date: 20140304
  Receipt Date: 20140304
  Transmission Date: 20141002
  Serious: No
  Sender: FDA-Public Use
  Company Number: US-ABBVIE-13P-163-1055938-00

PATIENT
  Age: 24 Year
  Sex: Female
  Weight: 54.48 kg

DRUGS (6)
  1. HUMIRA [Suspect]
     Indication: CROHN^S DISEASE
     Dosage: PATIENT HAS STARTED/STOPPED SEVERAL TIMES (DATES NOT REPORTED)
     Dates: start: 20091108, end: 201210
  2. HUMIRA [Suspect]
     Dosage: LOADING DOSE
     Dates: start: 20130226
  3. LOESTRIN FE [Concomitant]
     Indication: ORAL CONTRACEPTION
  4. IMODIUM [Concomitant]
     Indication: DIARRHOEA
  5. PROCHLORPERAZINE [Concomitant]
     Indication: NAUSEA
  6. MULTIVITAMIN [Concomitant]
     Indication: PRODUCT USED FOR UNKNOWN INDICATION

REACTIONS (6)
  - Lymphadenopathy [Not Recovered/Not Resolved]
  - Injection site vesicles [Not Recovered/Not Resolved]
  - Pneumonia [Unknown]
  - Oropharyngeal pain [Not Recovered/Not Resolved]
  - Incorrect dose administered [Not Recovered/Not Resolved]
  - Nasopharyngitis [Not Recovered/Not Resolved]
